FAERS Safety Report 4467912-4 (Version None)
Quarter: 2004Q4

REPORT INFORMATION
  Report Type: 
  Country: None (occurrence: None)
  Receive Date: 20041004
  Receipt Date: 20040916
  Transmission Date: 20050328
  Serious: Yes (Other)
  Sender: FDA-Public Use
  Company Number: 239351

PATIENT
  Age: 6 Year
  Sex: Male
  Weight: 20 kg

DRUGS (1)
  1. NORDITROPIN [Suspect]
     Indication: GROWTH HORMONE DEFICIENCY
     Dosage: 0.4 MG SUBCUTANEOUS
     Route: 058
     Dates: start: 20010601, end: 20040401

REACTIONS (3)
  - BRAIN NATRIURETIC PEPTIDE INCREASED [None]
  - HYPERTROPHIC CARDIOMYOPATHY [None]
  - VENTRICULAR SEPTAL DEFECT ACQUIRED [None]
